FAERS Safety Report 4330383-2 (Version None)
Quarter: 2004Q1

REPORT INFORMATION
  Report Type: 
  Country: None (occurrence: None)
  Receive Date: 20040329
  Receipt Date: 20040316
  Transmission Date: 20041129
  Serious: Yes (Hospitalization)
  Sender: FDA-Public Use
  Company Number: 04P-167-0254036-00

PATIENT
  Age: 50 Year
  Sex: Female
  Weight: 95 kg

DRUGS (4)
  1. HUMIRA [Suspect]
     Indication: RHEUMATOID ARTHRITIS
     Dosage: 40 MG, 1 IN 2 WK, SUBCUTANEOUS
     Route: 058
     Dates: start: 20030311
  2. ATENOLOL [Concomitant]
  3. FELODIPINE [Concomitant]
  4. ACETAMINOPHEN W/ CODEINE [Concomitant]

REACTIONS (1)
  - POST PROCEDURAL HAEMATOMA [None]
